FAERS Safety Report 25524789 (Version 3)
Quarter: 2025Q3

REPORT INFORMATION
  Report Type: Spontaneous
  Country: US (occurrence: US)
  Receive Date: 20250707
  Receipt Date: 20250722
  Transmission Date: 20251021
  Serious: No
  Sender: PFIZER
  Company Number: US-PFIZER INC-202500135071

PATIENT
  Age: 29 Year
  Sex: Male
  Weight: 53.061 kg

DRUGS (9)
  1. CIBINQO [Suspect]
     Active Substance: ABROCITINIB
     Indication: Eczema
     Dosage: 100 MG, 1X/DAY
     Route: 048
     Dates: start: 202505
  2. CIBINQO [Suspect]
     Active Substance: ABROCITINIB
     Indication: Dermatitis atopic
  3. CITALOPRAM [Concomitant]
     Active Substance: CITALOPRAM
  4. FINASTERIDE [Concomitant]
     Active Substance: FINASTERIDE
  5. MINOXIDIL [Concomitant]
     Active Substance: MINOXIDIL
  6. FISH OIL [Concomitant]
     Active Substance: FISH OIL
  7. ZINC [Concomitant]
     Active Substance: ZINC
  8. MAGNESIUM [Concomitant]
     Active Substance: MAGNESIUM
  9. PROBIOTICS NOS [Concomitant]
     Active Substance: PROBIOTICS NOS

REACTIONS (3)
  - Dyspepsia [Unknown]
  - Nausea [Unknown]
  - Staphylococcal infection [Unknown]

NARRATIVE: CASE EVENT DATE: 20250701
